FAERS Safety Report 10594715 (Version 3)
Quarter: 2014Q4

REPORT INFORMATION
  Report Type: Spontaneous
  Country: JP (occurrence: JP)
  Receive Date: 20141120
  Receipt Date: 20141125
  Transmission Date: 20150529
  Serious: Yes (Other)
  Sender: FDA-Public Use
  Company Number: JP-ROCHE-1493038

PATIENT
  Age: 77 Year
  Sex: Male

DRUGS (1)
  1. CEFTRIAXONE SODIUM. [Suspect]
     Active Substance: CEFTRIAXONE SODIUM
     Indication: APPENDICITIS
     Dosage: DOSAGE IS UNCERTAIN.  DRUG REPORTED AS CEFTRIAXONE SODIUM HYDRATE
     Route: 041

REACTIONS (2)
  - Kaposi^s varicelliform eruption [Recovered/Resolved]
  - Drug-induced liver injury [Recovered/Resolved]
